FAERS Safety Report 13627757 (Version 3)
Quarter: 2017Q3

REPORT INFORMATION
  Report Type: Spontaneous
  Country: US (occurrence: US)
  Receive Date: 20170607
  Receipt Date: 20170720
  Transmission Date: 20171127
  Serious: Yes (Other)
  Sender: FDA-Public Use
  Company Number: US-PFIZER INC-2017248236

PATIENT
  Age: 84 Year
  Sex: Female
  Weight: 67.59 kg

DRUGS (6)
  1. LYRICA [Suspect]
     Active Substance: PREGABALIN
     Indication: NEURALGIA
     Dosage: 50 MG, 1X/DAY
     Route: 048
     Dates: start: 201705
  2. LEVOTHYROXINE. [Concomitant]
     Active Substance: LEVOTHYROXINE
     Indication: THYROID DISORDER
     Dosage: 0.025 MG, 1X/DAY (ONCE IN THE MORNING)
     Dates: start: 1999
  3. SIMVASTATIN. [Concomitant]
     Active Substance: SIMVASTATIN
     Indication: BLOOD CHOLESTEROL ABNORMAL
     Dosage: 20 MG, 1X/DAY
     Route: 048
     Dates: start: 1999
  4. METOPROLOL. [Concomitant]
     Active Substance: METOPROLOL
     Indication: HEART RATE IRREGULAR
     Dosage: 25 MG, 1X/DAY (ONCE IN THE MORNING)
     Dates: start: 1999
  5. LYRICA [Suspect]
     Active Substance: PREGABALIN
     Indication: NERVE INJURY
     Dosage: 75 MG, CAPSULE, ORALLY/IT (FREQUENCY) WAS TO BE THREE TIMES A DAY
     Route: 048
     Dates: start: 20170602
  6. LYRICA [Suspect]
     Active Substance: PREGABALIN
     Indication: HYPOAESTHESIA
     Dosage: 50 MG, SINGLE
     Route: 048
     Dates: start: 20170602, end: 20170602

REACTIONS (6)
  - Movement disorder [Unknown]
  - Fall [Unknown]
  - Somnolence [Recovering/Resolving]
  - Limb discomfort [Recovering/Resolving]
  - Asthenia [Unknown]
  - Diplegia [Not Recovered/Not Resolved]

NARRATIVE: CASE EVENT DATE: 201705
